FAERS Safety Report 18942753 (Version 1)
Quarter: 2021Q1

REPORT INFORMATION
  Report Type: Spontaneous
  Country: US (occurrence: US)
  Receive Date: 20210225
  Receipt Date: 20210225
  Transmission Date: 20210420
  Serious: Yes (Life-Threatening, Hospitalization, Other)
  Sender: FDA-Public Use
  Company Number: US-MACLEODS PHARMACEUTICALS US LTD-MAC2021030262

PATIENT

DRUGS (2)
  1. TRIAMCINOLONE [Suspect]
     Active Substance: TRIAMCINOLONE
     Indication: BACK PAIN
     Dosage: 2 DOSAGE FORM, SINGLE, TOTAL, INJECTION
     Route: 008
  2. LIDOCAINE. [Suspect]
     Active Substance: LIDOCAINE
     Indication: BACK PAIN
     Dosage: 2 DOSAGE FORM, SINGLE, TOTAL, INJECTION
     Route: 008

REACTIONS (6)
  - Cerebral infarction [Recovering/Resolving]
  - Cerebrovascular accident [Recovering/Resolving]
  - Status epilepticus [Recovered/Resolved]
  - Cerebral venous thrombosis [Recovering/Resolving]
  - Intracranial hypotension [Recovering/Resolving]
  - Seizure [Recovered/Resolved]
